FAERS Safety Report 6390577-1 (Version None)
Quarter: 2009Q4

REPORT INFORMATION
  Report Type: 
  Country: None (occurrence: None)
  Receive Date: 20091005
  Receipt Date: 20091005
  Transmission Date: 20100525
  Serious: Yes (Other)
  Sender: FDA-Public Use
  Company Number: None

PATIENT
  Age: 62 Year
  Sex: Male
  Weight: 106.5953 kg

DRUGS (14)
  1. NPLATE [Suspect]
     Indication: IDIOPATHIC THROMBOCYTOPENIC PURPURA
     Dosage: VARIED BASED ON LABS WEEKLY SQ
     Route: 058
     Dates: start: 20080401, end: 20090601
  2. GAMMAGARD LIQUID [Concomitant]
  3. SOLU-MEDROL [Concomitant]
  4. PROMACTA [Concomitant]
  5. SOLU-MEDROL [Concomitant]
  6. CRESTOR [Concomitant]
  7. RITUXAN [Concomitant]
  8. VINCRISTINE [Concomitant]
  9. PREDNISONE [Concomitant]
  10. DANATOL [Concomitant]
  11. IMURAN [Concomitant]
  12. IMMUNE GLOBULIN INTRAVENOUS (HUMAN) [Concomitant]
  13. NPLATE [Concomitant]
  14. PROMACTA [Concomitant]

REACTIONS (2)
  - ASPIRATION BONE MARROW ABNORMAL [None]
  - FIBROSIS [None]
